FAERS Safety Report 8572067-0 (Version None)
Quarter: 2012Q2

REPORT INFORMATION
  Report Type: 
  Country: None (occurrence: None)
  Receive Date: 20120423
  Receipt Date: 20101027
  Transmission Date: 20120825
  Serious: Yes (Death, Hospitalization)
  Sender: FDA-Public Use
  Company Number: PHHY2010US54223

PATIENT
  Age: 63 Year
  Sex: Male
  Weight: 73 kg

DRUGS (2)
  1. EXJADE [Suspect]
     Indication: MULTIPLE MYELOMA
     Dosage: 1500 MG, QD, ORAL
     Route: 048
     Dates: start: 20100430
  2. EXJADE [Suspect]
     Indication: NEOPLASM
     Dosage: 1500 MG, QD, ORAL
     Route: 048
     Dates: start: 20100430

REACTIONS (2)
  - MALAISE [None]
  - MULTIPLE MYELOMA [None]
